FAERS Safety Report 6477853-9 (Version None)
Quarter: 2009Q4

REPORT INFORMATION
  Report Type: 
  Country: None (occurrence: None)
  Receive Date: 20091207
  Receipt Date: 20091201
  Transmission Date: 20100525
  Serious: Yes (Death)
  Sender: FDA-Public Use
  Company Number: GB-ASTRAZENECA-2009SE29559

PATIENT
  Age: 1 Month
  Sex: Male

DRUGS (4)
  1. PROPOFOL [Suspect]
     Indication: INDUCTION OF ANAESTHESIA
  2. MIDAZOLAM HCL [Suspect]
     Indication: INDUCTION OF ANAESTHESIA
  3. FENTANYL [Concomitant]
  4. SEVOFLURANE [Concomitant]

REACTIONS (3)
  - CONDITION AGGRAVATED [None]
  - METABOLIC ACIDOSIS [None]
  - RESPIRATORY FAILURE [None]
